FAERS Safety Report 4881312-4 (Version None)
Quarter: 2006Q1

REPORT INFORMATION
  Report Type: 
  Country: None (occurrence: None)
  Receive Date: 20060111
  Receipt Date: 20060111
  Transmission Date: 20060701
  Serious: No
  Sender: FDA-Public Use
  Company Number: None

PATIENT
  Sex: Male
  Weight: 86.637 kg

DRUGS (1)
  1. KENALOG-40 [Suspect]
     Indication: OSTEOARTHROPATHY
     Dosage: TAKE- AS DIRECTED

REACTIONS (1)
  - OSTEOARTHROPATHY [None]
